FAERS Safety Report 24326891 (Version 1)
Quarter: 2024Q3

REPORT INFORMATION
  Report Type: Spontaneous
  Country: BR (occurrence: BR)
  Receive Date: 20240917
  Receipt Date: 20240917
  Transmission Date: 20241016
  Serious: Yes (Other)
  Sender: BAXTER
  Company Number: BR-BAXTER-2024BAX024369

PATIENT
  Age: 24 Year
  Sex: Female
  Weight: 59.5 kg

DRUGS (2)
  1. IRON [Suspect]
     Active Substance: IRON
     Indication: Mineral supplementation
     Dosage: 100 MG/5ML OF SUCROFER DILUTED IN 250 ML OF 0.9% SALINE SOLUTION, INFUSION CARRIED OUT BETWEEN 50 AN
     Route: 042
     Dates: start: 20240628, end: 20240628
  2. SODIUM CHLORIDE [Suspect]
     Active Substance: SODIUM CHLORIDE
     Indication: Medication dilution
     Dosage: 250 ML OF 0.9% SALINE SOLUTION USED TO DILUTE 100 MG/5ML OF SUCROFER, INFUSION CARRIED OUT BETWEEN 5
     Route: 042
     Dates: start: 20240628, end: 20240628

REACTIONS (6)
  - Dyspnoea [Recovered/Resolved]
  - Urticaria [Recovered/Resolved]
  - Pruritus [Recovered/Resolved]
  - Erythema [Recovered/Resolved]
  - Skin plaque [Recovered/Resolved]
  - Rash [Recovered/Resolved]

NARRATIVE: CASE EVENT DATE: 20240628
